FAERS Safety Report 24810719 (Version 1)
Quarter: 2025Q1

REPORT INFORMATION
  Report Type: Spontaneous
  Country: US (occurrence: US)
  Receive Date: 20250106
  Receipt Date: 20250106
  Transmission Date: 20250408
  Serious: Yes (Death, Hospitalization, Other)
  Sender: DR REDDYS
  Company Number: US-DRL-USA-LIT/USA/24/0019339

PATIENT
  Age: 55 Year
  Sex: Female

DRUGS (4)
  1. CYCLOSPORINE [Suspect]
     Active Substance: CYCLOSPORINE
     Indication: Drug reaction with eosinophilia and systemic symptoms
  2. URSODIOL [Concomitant]
     Active Substance: URSODIOL
     Indication: Drug reaction with eosinophilia and systemic symptoms
     Route: 048
  3. PREDNISONE [Concomitant]
     Active Substance: PREDNISONE
     Indication: Drug reaction with eosinophilia and systemic symptoms
     Route: 042
  4. DUPILUMAB [Concomitant]
     Active Substance: DUPILUMAB
     Indication: Drug reaction with eosinophilia and systemic symptoms
     Route: 042

REACTIONS (3)
  - Pneumonia [Fatal]
  - Septic shock [Fatal]
  - Product use in unapproved indication [Unknown]
